FAERS Safety Report 15859431 (Version 2)
Quarter: 2019Q1

REPORT INFORMATION
  Report Type: Spontaneous
  Country: US (occurrence: US)
  Receive Date: 20190123
  Receipt Date: 20190128
  Transmission Date: 20190417
  Serious: Yes (Other)
  Sender: FDA-Public Use
  Company Number: US-PFIZER INC-2019025400

PATIENT
  Age: 45 Year
  Sex: Male
  Weight: 70.76 kg

DRUGS (1)
  1. LIPITOR [Suspect]
     Active Substance: ATORVASTATIN CALCIUM
     Indication: BLOOD CHOLESTEROL INCREASED
     Dosage: 10 MG, 1X/DAY (AT ALTERNATE DAY)
     Route: 048
     Dates: start: 2016, end: 201901

REACTIONS (4)
  - Carpal tunnel syndrome [Unknown]
  - Muscle spasms [Unknown]
  - Neuropathy peripheral [Recovered/Resolved]
  - Skin burning sensation [Unknown]

NARRATIVE: CASE EVENT DATE: 2016
